FAERS Safety Report 21029600 (Version 1)
Quarter: 2022Q2

REPORT INFORMATION
  Report Type: Spontaneous
  Country: FR (occurrence: FR)
  Receive Date: 20220630
  Receipt Date: 20220630
  Transmission Date: 20220721
  Serious: Yes (Hospitalization)
  Sender: FDA-Public Use
  Company Number: FR-LUNDBECK-DKLU3049544

PATIENT
  Sex: Female
  Weight: 62.5 kg

DRUGS (2)
  1. ESCITALOPRAM OXALATE [Suspect]
     Active Substance: ESCITALOPRAM OXALATE
     Indication: Bipolar disorder
     Dosage: 15 MG, QD
     Route: 048
     Dates: start: 20220415, end: 20220506
  2. TEGRETOL [Suspect]
     Active Substance: CARBAMAZEPINE
     Indication: Bipolar disorder
     Dosage: 400MG 2/DAY
     Route: 048
     Dates: start: 20220415, end: 20220506

REACTIONS (2)
  - Drug reaction with eosinophilia and systemic symptoms [Recovering/Resolving]
  - Product use in unapproved indication [Unknown]

NARRATIVE: CASE EVENT DATE: 20220502
